FAERS Safety Report 18557419 (Version 1)
Quarter: 2020Q4

REPORT INFORMATION
  Report Type: Spontaneous
  Country: IL (occurrence: IL)
  Receive Date: 20201129
  Receipt Date: 20201129
  Transmission Date: 20210114
  Serious: Yes (Other)
  Sender: FDA-Public Use
  Company Number: IL-ROCHE-2718687

PATIENT
  Sex: Female

DRUGS (24)
  1. AVASTIN [Suspect]
     Active Substance: BEVACIZUMAB
     Route: 065
     Dates: start: 20200603
  2. FEMARA [Concomitant]
     Active Substance: LETROZOLE
  3. DEXACORT [Concomitant]
     Active Substance: DEXAMETHASONE SODIUM PHOSPHATE
  4. KEYTRUDA [Concomitant]
     Active Substance: PEMBROLIZUMAB
  5. XELODA [Suspect]
     Active Substance: CAPECITABINE
     Indication: PRODUCT USED FOR UNKNOWN INDICATION
     Route: 048
     Dates: start: 200610, end: 200611
  6. TAXOTERE [Suspect]
     Active Substance: DOCETAXEL
     Route: 065
     Dates: start: 20141124, end: 20150514
  7. GEMZAR [Concomitant]
     Active Substance: GEMCITABINE HYDROCHLORIDE
  8. FASLODEX [Concomitant]
     Active Substance: FULVESTRANT
  9. XELODA [Suspect]
     Active Substance: CAPECITABINE
     Route: 048
     Dates: start: 20090318, end: 20101020
  10. NAVELBINE [Concomitant]
     Active Substance: VINORELBINE TARTRATE
  11. PALBOCICLIB [Concomitant]
     Active Substance: PALBOCICLIB
  12. VEPESIDE [Concomitant]
     Active Substance: ETOPOSIDE
  13. AROMASIN [Concomitant]
     Active Substance: EXEMESTANE
  14. NERATINIB [Concomitant]
     Active Substance: NERATINIB
  15. XELODA [Suspect]
     Active Substance: CAPECITABINE
     Route: 048
     Dates: start: 20190225, end: 20200511
  16. MEGACE [Concomitant]
     Active Substance: MEGESTROL ACETATE
  17. ADRIAMYCIN [Concomitant]
     Active Substance: DOXORUBICIN HYDROCHLORIDE
  18. AVASTIN [Suspect]
     Active Substance: BEVACIZUMAB
     Indication: CENTRAL NERVOUS SYSTEM NECROSIS
     Route: 065
     Dates: start: 20101229, end: 201303
  19. TAXOL [Suspect]
     Active Substance: PACLITAXEL
     Indication: PRODUCT USED FOR UNKNOWN INDICATION
     Route: 065
     Dates: start: 20101229, end: 201303
  20. TAXOTERE [Suspect]
     Active Substance: DOCETAXEL
     Route: 065
     Dates: start: 20090318, end: 20101020
  21. TAXOTERE [Suspect]
     Active Substance: DOCETAXEL
     Route: 065
     Dates: start: 20190225, end: 20200511
  22. XELODA [Suspect]
     Active Substance: CAPECITABINE
     Route: 048
     Dates: start: 20141124, end: 20151111
  23. TAXOTERE [Suspect]
     Active Substance: DOCETAXEL
     Indication: CENTRAL NERVOUS SYSTEM NECROSIS
     Route: 065
     Dates: start: 200303
  24. ZOLADEX [Concomitant]
     Active Substance: GOSERELIN ACETATE

REACTIONS (5)
  - Balance disorder [Unknown]
  - Off label use [Unknown]
  - Central nervous system necrosis [Unknown]
  - Product use in unapproved indication [Unknown]
  - Disease progression [Unknown]
